FAERS Safety Report 8280424-5 (Version None)
Quarter: 2012Q2

REPORT INFORMATION
  Report Type: 
  Country: None (occurrence: None)
  Receive Date: 20120412
  Receipt Date: 20120104
  Transmission Date: 20120825
  Serious: No
  Sender: FDA-Public Use
  Company Number: US-ASTRAZENECA-2012SE00917

PATIENT
  Age: 80 Year
  Sex: Female
  Weight: 64 kg

DRUGS (3)
  1. NEXIUM [Suspect]
     Indication: EATING DISORDER
     Route: 048
  2. CHOLESTEROL MEDICATION [Concomitant]
  3. HEART PROBLEM MEDICATION [Concomitant]

REACTIONS (2)
  - DRUG PRESCRIBING ERROR [None]
  - POOR QUALITY SLEEP [None]
